FAERS Safety Report 10758770 (Version 1)
Quarter: 2015Q1

REPORT INFORMATION
  Report Type: Spontaneous
  Country: BW (occurrence: None)
  Receive Date: 20150202
  Receipt Date: 20150202
  Transmission Date: 20150721
  Serious: Yes (Disabling)
  Sender: FDA-Public Use
  Company Number: None

PATIENT
  Age: 47 Year
  Sex: Male
  Weight: 69 kg

DRUGS (1)
  1. COARTEM [Suspect]
     Active Substance: ARTEMETHER\LUMEFANTRINE
     Indication: MALARIA
     Dosage: FULL COURSE; 4/2/2; TDS
     Route: 048

REACTIONS (5)
  - Musculoskeletal stiffness [None]
  - Muscle twitching [None]
  - Clonus [None]
  - Hyperreflexia [None]
  - Paraesthesia [None]
